FAERS Safety Report 12012205 (Version 1)
Quarter: 2016Q1

REPORT INFORMATION
  Report Type: Spontaneous
  Country: US (occurrence: US)
  Receive Date: 20160205
  Receipt Date: 20160205
  Transmission Date: 20160526
  Serious: Yes (Other)
  Sender: FDA-Public Use
  Company Number: US-ASTRAZENECA-2016SE10494

PATIENT
  Age: 20290 Day
  Sex: Male

DRUGS (3)
  1. TEGRILIN [Concomitant]
     Dosage: DAILY
  2. BRILINTA [Suspect]
     Active Substance: TICAGRELOR
     Indication: STENT PLACEMENT
     Route: 048
  3. ASPIRIN. [Concomitant]
     Active Substance: ASPIRIN
     Route: 048

REACTIONS (2)
  - Off label use [Unknown]
  - Vascular stent restenosis [Unknown]

NARRATIVE: CASE EVENT DATE: 20160120
